FAERS Safety Report 9500553 (Version 1)
Quarter: 2013Q1

REPORT INFORMATION
  Report Type: Spontaneous
  Country: US (occurrence: None)
  Receive Date: 20130118
  Receipt Date: 20130118
  Transmission Date: 20140127
  Serious: Yes (Other)
  Sender: FDA-Public Use
  Company Number: A-US2012-74561

PATIENT
  Age: 49 Year
  Sex: Female

DRUGS (5)
  1. TRACLEER [Suspect]
     Indication: PULMONARY ARTERIAL HYPERTENSION
     Route: 048
     Dates: start: 20120605, end: 20121012
  2. VELETRI [Suspect]
     Indication: PULMONARY ARTERIAL HYPERTENSION
     Dosage: 15.5 NG/KG, PER MIN, INTRAVENOUS
     Route: 042
     Dates: start: 20120508
  3. ASPIRIN (ACETYLSALICYLIC ACID) [Concomitant]
  4. SILDENAFIL (SILDENAFIL CITRATE) [Concomitant]
  5. COUMADIN (WARFARIN SODIUM) [Concomitant]

REACTIONS (3)
  - Aspartate aminotransferase increased [None]
  - Alanine aminotransferase increased [None]
  - Blood bilirubin increased [None]
